FAERS Safety Report 8228047-8 (Version None)
Quarter: 2012Q1

REPORT INFORMATION
  Report Type: 
  Country: None (occurrence: None)
  Receive Date: 20120322
  Receipt Date: 20120117
  Transmission Date: 20120608
  Serious: No
  Sender: FDA-Public Use
  Company Number: US-BRISTOL-MYERS SQUIBB COMPANY-16344996

PATIENT
  Age: 56 Year
  Sex: Male

DRUGS (3)
  1. ERBITUX [Suspect]
     Indication: TONGUE NEOPLASM MALIGNANT STAGE UNSPECIFIED
     Dosage: 400MG/M2 OR 736MG ALSO 460MG LAST INF: 10JAN12. NOT REINTRODUCED
     Route: 042
     Dates: start: 20111114
  2. VICODIN [Concomitant]
     Indication: PAIN
  3. NYSTATIN [Concomitant]
     Dosage: 1 DF= 1 SWISH

REACTIONS (7)
  - GLOSSODYNIA [None]
  - RASH [None]
  - DRY SKIN [None]
  - OROPHARYNGEAL PAIN [None]
  - EATING DISORDER [None]
  - ACNE [None]
  - MUSCLE SPASMS [None]
